FAERS Safety Report 24128400 (Version 1)
Quarter: 2024Q3

REPORT INFORMATION
  Report Type: Report from Study
  Country: US (occurrence: US)
  Receive Date: 20240723
  Receipt Date: 20240723
  Transmission Date: 20241017
  Serious: No
  Sender: VANDA PHARMACEUTICALS
  Company Number: US-VANDA PHARMACEUTICALS, INC-2024TASUS007152

PATIENT
  Sex: Male
  Weight: 145.6 kg

DRUGS (30)
  1. HETLIOZ [Suspect]
     Active Substance: TASIMELTEON
     Indication: Non-24-hour sleep-wake disorder
     Dosage: 20 MILLIGRAM, QD, ORAL, ONCE DAILY
     Route: 048
  2. HETLIOZ [Suspect]
     Active Substance: TASIMELTEON
     Indication: Migraine
  3. ACETAMINOPHEN AND CODEINE [Concomitant]
     Active Substance: ACETAMINOPHEN\CODEINE PHOSPHATE
     Indication: Pain
     Dosage: 1 DOSAGE FORM Q4H-Q6H, PRN
     Route: 048
     Dates: start: 20210429
  4. ACETAMINOPHEN AND CODEINE [Concomitant]
     Active Substance: ACETAMINOPHEN\CODEINE PHOSPHATE
     Dosage: 1 DOSAGE FORM Q4H-Q6H, PRN
     Route: 048
     Dates: start: 20230517
  5. ALBUTEROL SULFATE [Concomitant]
     Active Substance: ALBUTEROL SULFATE
     Indication: Product used for unknown indication
     Dosage: 2 DOSAGE FORM (PUFFS) Q4H-Q6H FOR THE NEXT 5-7 DAYS THEN AS NEEDED
     Route: 048
     Dates: start: 20220119
  6. AMITRIPTYLINE [Concomitant]
     Active Substance: AMITRIPTYLINE
     Indication: Product used for unknown indication
     Dosage: TAKE 2 OR 3 DAYS QHS AS NEEDED
     Route: 048
     Dates: start: 20220413
  7. AUVI-Q [Concomitant]
     Active Substance: EPINEPHRINE
     Indication: Hypersensitivity
     Dosage: UNK, PRN
     Dates: start: 20220120
  8. AZITHROMYCIN [Concomitant]
     Active Substance: AZITHROMYCIN
     Indication: Product used for unknown indication
     Dosage: UNK, TAKE 2 TABLETS ON DAY 1 THE TAKE 1 TABLET A DAY FOR 4 DAYS
     Route: 048
     Dates: start: 20231208
  9. DEXAMETHASONE [Concomitant]
     Active Substance: DEXAMETHASONE
     Indication: Product used for unknown indication
     Dosage: UNK, PRN AT 11 PM
     Route: 048
     Dates: start: 20220623, end: 20220623
  10. DULOXETINE HYDROCHLORIDE [Concomitant]
     Active Substance: DULOXETINE HYDROCHLORIDE
     Indication: Product used for unknown indication
     Dosage: UNK, TAKE ONE CAPSULE BY MIOUTH IN THE MORNING
     Route: 048
     Dates: start: 20231004
  11. EMGALITY [Concomitant]
     Active Substance: GALCANEZUMAB-GNLM
     Indication: Product used for unknown indication
     Dosage: UNK, INJECT ONCE A MONTH 120 MG/ML X 1 ML
     Route: 058
     Dates: start: 20230927
  12. FENTANYL [Concomitant]
     Active Substance: FENTANYL\FENTANYL CITRATE
     Indication: Pain
     Dosage: UNK, APPLY 1 PATCH, Q3DAYS
     Route: 062
     Dates: start: 20231111
  13. FLUTICASONE PROPIONATE [Concomitant]
     Active Substance: FLUTICASONE PROPIONATE
     Indication: Product used for unknown indication
     Dosage: 1-2 SPRAYS INTO BOTH NOSTRILS, QD
     Route: 045
     Dates: start: 20200115, end: 20220203
  14. GABAPENTIN [Concomitant]
     Active Substance: GABAPENTIN
     Indication: Product used for unknown indication
     Dosage: 300 MILLIGRAM, TID
     Route: 048
     Dates: start: 20220817
  15. GABAPENTIN [Concomitant]
     Active Substance: GABAPENTIN
     Dosage: 800 MILLIGRAM, QD
     Route: 048
     Dates: start: 20230929
  16. GENTAMICIN SULFATE [Concomitant]
     Active Substance: GENTAMICIN SULFATE
     Indication: Product used for unknown indication
     Dosage: INSTILL 1 DROP IN BOTH EYES EVERY 4 HOURS DAILY, FOR 3 DAYS
     Route: 047
     Dates: start: 20230104
  17. HYDROMORPHONE HCL [Concomitant]
     Active Substance: HYDROMORPHONE HYDROCHLORIDE
     Indication: Pain
     Dosage: UNK, 1-2 TABLETS PO Q6 PM MODERATE TO SEVERE PAIN
     Route: 048
     Dates: start: 20231205
  18. KETOROLAC TROMETHAMINE [Concomitant]
     Active Substance: KETOROLAC TROMETHAMINE
     Indication: Pain
     Dosage: UNK, TAKE ONE TABLET UPTO 3 TIMES A WEEK FOR PAIN
     Route: 048
     Dates: start: 20211208
  19. MONTELUKAST SODIUM [Concomitant]
     Active Substance: MONTELUKAST SODIUM
     Indication: Product used for unknown indication
     Dosage: UNK
     Route: 048
     Dates: start: 20220202
  20. MORPHINE SULFATE [Concomitant]
     Active Substance: MORPHINE SULFATE
     Indication: Pain
     Dosage: UNK, TAKE 1 TO 2 TABLETS Q* PRN PAIN
     Route: 048
     Dates: start: 20220121, end: 20240205
  21. ONDANSETRON [Concomitant]
     Active Substance: ONDANSETRON
     Indication: Product used for unknown indication
     Dosage: 1 TABLET Q8H, LET TABLET DISSOLVE UNDER TONGUE
     Route: 048
     Dates: start: 20210115
  22. OXYCODONE HYDROCHLORIDE [Concomitant]
     Active Substance: OXYCODONE HYDROCHLORIDE
     Indication: Product used for unknown indication
     Dosage: ONE TABLET UP TO TID
     Route: 048
     Dates: start: 20230831
  23. PREDNISONE [Concomitant]
     Active Substance: PREDNISONE
     Indication: Product used for unknown indication
     Dosage: UNK
     Route: 048
     Dates: start: 20220120
  24. PREGABALIN [Concomitant]
     Active Substance: PREGABALIN
     Indication: Product used for unknown indication
     Dosage: 1 CAPSULE, QID
     Route: 048
     Dates: start: 20210429
  25. SAXENDA [Concomitant]
     Active Substance: LIRAGLUTIDE
     Indication: Product used for unknown indication
     Dosage: INJECT 3 MG, QD
     Route: 058
     Dates: start: 20230607
  26. SUMATRIPTAN SUCCINATE [Concomitant]
     Active Substance: SUMATRIPTAN SUCCINATE
     Indication: Product used for unknown indication
     Dosage: UNK, PRN
     Route: 058
     Dates: start: 20211203
  27. TESTOSTERONE CYPIONATE [Concomitant]
     Active Substance: TESTOSTERONE CYPIONATE
     Indication: Product used for unknown indication
     Dosage: UNK, INJECT 0.5 ML EVERY 2 WEEKS
     Route: 030
     Dates: start: 20220124
  28. TIZANIDINE HYDROCHLORIDE [Concomitant]
     Active Substance: TIZANIDINE HYDROCHLORIDE
     Indication: Product used for unknown indication
     Dosage: UNK, QHS
     Route: 048
  29. VITAMIN D3 [Concomitant]
     Active Substance: CHOLECALCIFEROL
     Indication: Product used for unknown indication
     Dosage: UNK, QD
     Route: 048
  30. ZOLPIDEM TARTRATE [Concomitant]
     Active Substance: ZOLPIDEM TARTRATE
     Indication: Product used for unknown indication
     Dosage: UNK, PRN
     Route: 048

REACTIONS (3)
  - Nausea [Recovered/Resolved]
  - Migraine [Unknown]
  - Headache [Unknown]
